FAERS Safety Report 5295406-5 (Version None)
Quarter: 2007Q2

REPORT INFORMATION
  Report Type: 
  Country: None (occurrence: None)
  Receive Date: 20070406
  Receipt Date: 20070326
  Transmission Date: 20071010
  Serious: Yes (Death)
  Sender: FDA-Public Use
  Company Number: 2007313105

PATIENT
  Age: 39 Year
  Sex: Female
  Weight: 80.7 kg

DRUGS (14)
  1. BENADRYL [Suspect]
  2. ACETAMINOPHEN [Suspect]
  3. CHLORAL HYDRATE (CHLORAL HYDRATE) [Suspect]
  4. DRUG, UNSPECIFIED (DRUG, UNSPECIFIED) [Suspect]
  5. TRICHLOROACETIC ACID (TRICHLOROACETIC ACID) [Suspect]
  6. KLONOPIN [Suspect]
  7. VALIUM [Suspect]
  8. NORDAZEPAM (NORDAZEPAM) [Suspect]
  9. TEMAZEPAM [Suspect]
  10. OXAZEPAM [Suspect]
  11. LORAZEPAM [Suspect]
  12. ATROPINE [Suspect]
  13. TOPIRAMATE [Suspect]
  14. CIPROFLOXACIN [Suspect]

REACTIONS (21)
  - ACCIDENT [None]
  - CALCINOSIS [None]
  - CEREBRAL INFARCTION [None]
  - CONTUSION [None]
  - CYST [None]
  - DRUG TOXICITY [None]
  - ECCHYMOSIS [None]
  - FAT NECROSIS [None]
  - FIBROSIS [None]
  - GASTROENTERITIS VIRAL [None]
  - HEPATOMEGALY [None]
  - LUNG INFILTRATION [None]
  - MUSCLE HAEMORRHAGE [None]
  - MYOCARDIAL FIBROSIS [None]
  - NODULE [None]
  - OEDEMA [None]
  - PANNICULITIS [None]
  - PLEURAL ADHESION [None]
  - SCAR [None]
  - SUBCUTANEOUS ABSCESS [None]
  - THYROID DISORDER [None]
